FAERS Safety Report 6574806-7 (Version None)
Quarter: 2010Q1

REPORT INFORMATION
  Report Type: 
  Country: None (occurrence: None)
  Receive Date: 20100209
  Receipt Date: 20100126
  Transmission Date: 20100710
  Serious: Yes (Other)
  Sender: FDA-Public Use
  Company Number: PHHY2010US04470

PATIENT
  Sex: Female
  Weight: 71 kg

DRUGS (1)
  1. GLEEVEC [Suspect]
     Indication: CHRONIC MYELOID LEUKAEMIA
     Dosage: 400 MG, QD
     Route: 048
     Dates: start: 20080627, end: 20100125

REACTIONS (3)
  - ATRIOVENTRICULAR BLOCK [None]
  - CHEST PAIN [None]
  - CHRONIC MYELOID LEUKAEMIA [None]
